FAERS Safety Report 5218624-0 (Version None)
Quarter: 2007Q1

REPORT INFORMATION
  Report Type: 
  Country: None (occurrence: None)
  Receive Date: 20070122
  Receipt Date: 20070109
  Transmission Date: 20070707
  Serious: Yes (Other)
  Sender: FDA-Public Use
  Company Number: ALA_0013_2006

PATIENT
  Age: 35 Year
  Sex: Male

DRUGS (2)
  1. MESALAZINE [Suspect]
     Indication: COLITIS ULCERATIVE
     Dosage: DF
  2. SULFASALAZINE [Suspect]
     Dosage: DF

REACTIONS (2)
  - LUNG DISORDER [None]
  - LUNG INJURY [None]
